FAERS Safety Report 7014557-8 (Version None)
Quarter: 2010Q3

REPORT INFORMATION
  Report Type: 
  Country: None (occurrence: None)
  Receive Date: 20100927
  Receipt Date: 20100917
  Transmission Date: 20110219
  Serious: Yes (Hospitalization)
  Sender: FDA-Public Use
  Company Number: SG-NOVOPROD-315062

PATIENT
  Age: 63 Year
  Sex: Male
  Weight: 53 kg

DRUGS (9)
  1. MIXTARD 30 NOVOLET [Suspect]
     Indication: DIABETES MELLITUS
     Dosage: UNK
     Route: 058
     Dates: start: 20081030
  2. AXITINIB [Suspect]
     Indication: PANCREATIC CARCINOMA
     Dosage: 2 MG, BID
     Route: 048
     Dates: start: 20080911, end: 20081105
  3. GEMCITABINE [Suspect]
     Indication: PANCREATIC CARCINOMA
     Dosage: 1470 MG, WEEKLY
     Route: 042
     Dates: start: 20080911
  4. ENALAPRIL [Concomitant]
     Dosage: UNK
     Route: 048
     Dates: start: 20040101
  5. ENZYPLEX                           /00397501/ [Concomitant]
     Dosage: UNK
     Route: 048
     Dates: start: 20080507
  6. ATENOLOL [Concomitant]
     Dosage: UNK
     Route: 048
     Dates: start: 20081021
  7. CELEBREX [Concomitant]
     Dosage: UNK
     Route: 048
     Dates: start: 20081113
  8. LOSEC                              /00661201/ [Concomitant]
     Dosage: UNK
     Route: 048
     Dates: start: 20081113
  9. LOPERAMIDE [Concomitant]
     Dosage: UNK
     Route: 048
     Dates: start: 20081113

REACTIONS (1)
  - LOWER RESPIRATORY TRACT INFECTION [None]
